FAERS Safety Report 12907611 (Version 2)
Quarter: 2016Q4

REPORT INFORMATION
  Report Type: Report from Study
  Country: US (occurrence: US)
  Receive Date: 20161103
  Receipt Date: 20161122
  Transmission Date: 20170207
  Serious: Yes (Other)
  Sender: FDA-Public Use
  Company Number: US-SA-2016SA192316

PATIENT
  Age: 48 Year
  Sex: Female

DRUGS (2)
  1. LEMTRADA [Suspect]
     Active Substance: ALEMTUZUMAB
     Indication: MULTIPLE SCLEROSIS
     Route: 041
     Dates: start: 20161003, end: 20161007
  2. ACYCLOVIR. [Concomitant]
     Active Substance: ACYCLOVIR
     Indication: PROPHYLAXIS

REACTIONS (15)
  - Condition aggravated [Not Recovered/Not Resolved]
  - Asthenia [Recovered/Resolved]
  - Hemiparesis [Not Recovered/Not Resolved]
  - Retching [Recovered/Resolved]
  - Vomiting [Recovered/Resolved]
  - Muscular weakness [Recovered/Resolved]
  - Blood potassium decreased [Unknown]
  - Gait disturbance [Not Recovered/Not Resolved]
  - Hyperhidrosis [Recovered/Resolved]
  - Hyperventilation [Recovered/Resolved]
  - Dyspnoea [Recovered/Resolved]
  - Pharyngeal oedema [Recovered/Resolved]
  - Urinary incontinence [Recovered/Resolved]
  - Proteinuria [Not Recovered/Not Resolved]
  - Memory impairment [Not Recovered/Not Resolved]

NARRATIVE: CASE EVENT DATE: 201610
